FAERS Safety Report 5005850-9 (Version None)
Quarter: 2006Q1

REPORT INFORMATION
  Report Type: 
  Country: None (occurrence: None)
  Receive Date: 20060327
  Receipt Date: 20060210
  Transmission Date: 20060701
  Serious: Yes (Other)
  Sender: FDA-Public Use
  Company Number: PHEH2006US02074

PATIENT
  Age: 6 Year
  Sex: Male

DRUGS (3)
  1. FOCALIN XR [Suspect]
     Indication: ATTENTION DEFICIT/HYPERACTIVITY DISORDER
     Dosage: 20 MG, QD, ORAL
     Route: 048
     Dates: end: 20060125
  2. FOCALIN XR [Suspect]
     Indication: ATTENTION DEFICIT/HYPERACTIVITY DISORDER
     Dosage: 20 MG, QD, ORAL
     Route: 048
     Dates: start: 20060130, end: 20060130
  3. FOCALIN [Suspect]
     Indication: ATTENTION DEFICIT/HYPERACTIVITY DISORDER
     Dosage: 10 MG, QD, ORAL
     Route: 048
     Dates: end: 20060125

REACTIONS (2)
  - EYE MOVEMENT DISORDER [None]
  - SIMPLE PARTIAL SEIZURES [None]
